FAERS Safety Report 16940453 (Version 1)
Quarter: 2019Q4

REPORT INFORMATION
  Report Type: Spontaneous
  Country: JP (occurrence: JP)
  Receive Date: 20191021
  Receipt Date: 20191021
  Transmission Date: 20200122
  Serious: Yes (Other)
  Sender: FDA-Public Use
  Company Number: JP-VIIV HEALTHCARE LIMITED-JP2019JPN187158

PATIENT
  Age: 40 Year
  Sex: Male

DRUGS (5)
  1. TIVICAY [Suspect]
     Active Substance: DOLUTEGRAVIR SODIUM
     Indication: HIV INFECTION
     Dosage: UNK
     Route: 048
  2. SULFAMETHOXAZOLE/TRIMETHOPRIM TABLETS [Concomitant]
     Active Substance: SULFAMETHOXAZOLE\TRIMETHOPRIM
     Dosage: UNK
  3. ZIAGEN [Suspect]
     Active Substance: ABACAVIR SULFATE
     Indication: HIV INFECTION
     Dosage: UNK
     Route: 048
  4. EPIVIR [Suspect]
     Active Substance: LAMIVUDINE
     Indication: HIV INFECTION
     Dosage: UNK
     Route: 048
  5. VALGANCICLOVIR HYDROCHLORIDE. [Concomitant]
     Active Substance: VALGANCICLOVIR HYDROCHLORIDE
     Dosage: 900 MG, BID

REACTIONS (6)
  - Histoplasmosis disseminated [Recovering/Resolving]
  - Pyrexia [Recovering/Resolving]
  - Erythema [Recovering/Resolving]
  - Papule [Recovering/Resolving]
  - Rash [Recovering/Resolving]
  - Macule [Recovering/Resolving]
